FAERS Safety Report 6564419-5 (Version None)
Quarter: 2010Q1

REPORT INFORMATION
  Report Type: 
  Country: None (occurrence: None)
  Receive Date: 20100201
  Receipt Date: 20100125
  Transmission Date: 20100710
  Serious: Yes (Hospitalization)
  Sender: FDA-Public Use
  Company Number: FR-BRISTOL-MYERS SQUIBB COMPANY-14900278

PATIENT
  Age: 59 Year
  Sex: Male
  Weight: 59 kg

DRUGS (9)
  1. REYATAZ [Suspect]
     Indication: HIV INFECTION
     Route: 048
     Dates: start: 20090530
  2. TRUVADA [Suspect]
     Indication: HIV INFECTION
     Dosage: 1 DF - 200/245MG
     Dates: start: 20090530
  3. NORVIR [Suspect]
     Indication: HIV INFECTION
     Route: 048
     Dates: start: 20090530
  4. BACTRIM [Suspect]
     Indication: INFECTION PROPHYLAXIS
     Dosage: DOSAGE FORM: TABLET
     Dates: start: 20090530
  5. AZADOSE [Suspect]
     Indication: INFECTION PROPHYLAXIS
     Dosage: 2 DF-2 TABS
     Dates: start: 20090530
  6. RAMIPRIL [Suspect]
     Indication: HYPERTENSION
     Route: 048
     Dates: start: 20090530
  7. TEMERIT [Suspect]
     Indication: HYPERTENSION
     Route: 048
     Dates: start: 20090530
  8. DIFFU-K [Suspect]
     Indication: HYPERTENSION
     Route: 048
     Dates: start: 20090530
  9. IMODIUM [Suspect]

REACTIONS (3)
  - DYSPNOEA [None]
  - HYPERCAPNIA [None]
  - POLYNEUROPATHY [None]
